FAERS Safety Report 11186178 (Version 4)
Quarter: 2015Q4

REPORT INFORMATION
  Report Type: Report from Study
  Country: JP (occurrence: JP)
  Receive Date: 20150612
  Receipt Date: 20151210
  Transmission Date: 20160304
  Serious: Yes (Death)
  Sender: FDA-Public Use
  Company Number: JP-009507513-1310JPN009892

PATIENT
  Age: 87 Year
  Sex: Female

DRUGS (11)
  1. PROMAC (POLAPREZINC) [Concomitant]
     Active Substance: POLAPREZINC
     Indication: GASTRIC ULCER
     Dosage: 75 MG DAILY, DIVIDED DOSE FREQUENCY UNKNOWN. FORMULATION: POR
     Route: 048
     Dates: end: 20150328
  2. ACARDI [Concomitant]
     Indication: CARDIAC FAILURE CHRONIC
     Dosage: 2.5 MG DAILY, DIVIDED DOSE FREQUENCY UNKNOWN. FORMULATION: POR
     Route: 048
     Dates: end: 20150328
  3. L CARTIN [Concomitant]
     Indication: CARNITINE DEFICIENCY
     Dosage: 900 MG DAILY, DIVIDED DOSE FREQUENCY UNKNOWN. FORMULATION: POR
     Route: 048
     Dates: end: 20150328
  4. DIAZOXIDE [Suspect]
     Active Substance: DIAZOXIDE
     Indication: HYPOGLYCAEMIA
     Dosage: 100 MG, QD
     Route: 048
     Dates: start: 20130823, end: 20131124
  5. CORTRIL [Concomitant]
     Active Substance: HYDROCORTISONE
     Indication: ADRENAL INSUFFICIENCY
     Dosage: 10 MG DAILY, DIVIDED DOSE FREQUENCY UNKNOWN. FORMULATION: POR
     Route: 048
     Dates: end: 20150328
  6. TAKEPRON [Concomitant]
     Active Substance: LANSOPRAZOLE
     Indication: GASTROOESOPHAGEAL REFLUX DISEASE
     Dosage: 15 MG DAILY, DIVIDED DOSE FREQUENCY UNKNOWN. FORMULATION: POR
     Route: 048
     Dates: end: 20150328
  7. DIAZOXIDE [Suspect]
     Active Substance: DIAZOXIDE
     Dosage: 150 MG, QD
     Route: 048
     Dates: start: 20131125, end: 20140119
  8. DIAZOXIDE [Suspect]
     Active Substance: DIAZOXIDE
     Dosage: 150 MG, QD
     Route: 048
     Dates: start: 20140613, end: 20150328
  9. THYRADIN [Concomitant]
     Active Substance: LEVOTHYROXINE
     Indication: HYPOTHYROIDISM
     Dosage: 75 MICROGRAM DAILY, DIVIDED DOSE FREQUENCY UNKNOWN. FORMULATION: POR
     Route: 048
     Dates: end: 20150328
  10. BIOFERMIN (BACILLUS SUBTILIS (+) LACTOBACILLUS ACIDOPHILUS (+) STREPTO [Concomitant]
     Active Substance: BACILLUS SUBTILIS\LACTOBACILLUS ACIDOPHILUS\STREPTOCOCCUS FAECAIS
     Indication: ENTEROCOLITIS
     Dosage: 3 DF DAILY, DIVIDED DOSE FREQUENCY UNKNOWN
     Route: 048
     Dates: end: 20150328
  11. DIAZOXIDE [Suspect]
     Active Substance: DIAZOXIDE
     Dosage: 200 MG, QD
     Route: 048
     Dates: start: 20140120, end: 20140612

REACTIONS (2)
  - Cardiac failure [Fatal]
  - Anaemia [Fatal]

NARRATIVE: CASE EVENT DATE: 20150328
